FAERS Safety Report 7484218-X (Version None)
Quarter: 2011Q2

REPORT INFORMATION
  Report Type: 
  Country: None (occurrence: None)
  Receive Date: 20110517
  Receipt Date: 20110504
  Transmission Date: 20111010
  Serious: Yes (Other)
  Sender: FDA-Public Use
  Company Number: PHHY2011BR38683

PATIENT
  Sex: Female
  Weight: 53 kg

DRUGS (7)
  1. ASPIRIN [Concomitant]
     Indication: ATRIOVENTRICULAR BLOCK
     Dosage: 2 DF, QD, AT NIGHT AT ONCE
     Route: 048
  2. DIOVAN HCT [Suspect]
     Indication: HYPERTENSION
     Dosage: 1 DF A DAY (80 MG VALSARTAN AND 12.5 HYDROCHLOROTHIAZIDE)
     Route: 048
  3. DIOVAN HCT [Suspect]
     Dosage: 0.5 DF A DAY (80 MG VALSARTAN AND 12.5 HYDROCHLOROTHIAZIDE)
     Route: 048
     Dates: start: 20110503
  4. VASOGARD [Concomitant]
     Indication: ATRIOVENTRICULAR BLOCK
     Dosage: 1 DF, BID, IN MORNING AND AT NIGHT
     Route: 048
  5. ZETSIM [Concomitant]
     Indication: BLOOD CHOLESTEROL INCREASED
     Dosage: 1 DF, QD, AT NIGHT
     Route: 048
  6. CALCIUM CARBONATE W/VITAMIN D NOS [Concomitant]
     Indication: OSTEOPOROSIS
     Dosage: 1 DF, BID, AT LUNCH AND DINNER
     Route: 048
  7. ATLANSIL [Concomitant]
     Indication: ARRHYTHMIA
     Dosage: 1 DF, BID, IN THE MORNING AND AT NIGHT
     Dates: start: 20091201

REACTIONS (9)
  - MYOCARDIAL ISCHAEMIA [None]
  - BALANCE DISORDER [None]
  - FEAR [None]
  - NERVOUSNESS [None]
  - HYPOTENSION [None]
  - WRONG TECHNIQUE IN DRUG USAGE PROCESS [None]
  - FALL [None]
  - TREMOR [None]
  - ARRHYTHMIA [None]
